FAERS Safety Report 7576164-8 (Version None)
Quarter: 2011Q2

REPORT INFORMATION
  Report Type: 
  Country: None (occurrence: None)
  Receive Date: 20110623
  Receipt Date: 20110623
  Transmission Date: 20111010
  Serious: Yes (Other)
  Sender: FDA-Public Use
  Company Number: None

PATIENT
  Sex: Female
  Weight: 41.8 kg

DRUGS (1)
  1. OFATUMUMAB (ARZERRA) 20MG/ML GLAXOSMITHKLINE [Suspect]
     Indication: CHRONIC LYMPHOCYTIC LEUKAEMIA
     Dosage: 300MG ONCE IVPB
     Dates: start: 20110621

REACTIONS (2)
  - CHEST DISCOMFORT [None]
  - RASH [None]
